FAERS Safety Report 23404071 (Version 2)
Quarter: 2024Q2

REPORT INFORMATION
  Report Type: Spontaneous
  Country: IE (occurrence: IE)
  Receive Date: 20240116
  Receipt Date: 20240423
  Transmission Date: 20240715
  Serious: Yes (Death, Other)
  Sender: FDA-Public Use
  Company Number: IE-BRISTOL-MYERS SQUIBB COMPANY-2024-007595

PATIENT
  Age: 87 Year
  Sex: Female

DRUGS (4)
  1. POMALIDOMIDE [Suspect]
     Active Substance: POMALIDOMIDE
     Indication: Plasma cell myeloma refractory
     Dosage: OD 21/7
     Route: 048
     Dates: start: 20231101, end: 20231130
  2. ALLOPURINOL [Concomitant]
     Active Substance: ALLOPURINOL
     Indication: Product used for unknown indication
     Dosage: LONG TERM USE
     Route: 048
  3. VALTREX [Concomitant]
     Active Substance: VALACYCLOVIR HYDROCHLORIDE
     Indication: Product used for unknown indication
     Dosage: LONG TERM USE, ANTI VIRAL MEDICATION
  4. SULFAMETHOXAZOLE\TRIMETHOPRIM [Concomitant]
     Active Substance: SULFAMETHOXAZOLE\TRIMETHOPRIM
     Indication: Infection prophylaxis
     Dosage: 80/400, LONG TERM USE
     Route: 048

REACTIONS (8)
  - Sepsis [Fatal]
  - Pneumonia [Fatal]
  - Acute myocardial infarction [Fatal]
  - Plasma cell myeloma [Fatal]
  - Aortic stenosis [Fatal]
  - Diverticulum [Fatal]
  - Hypertension [Fatal]
  - Gastrooesophageal reflux disease [Fatal]
